FAERS Safety Report 6879272-X (Version None)
Quarter: 2010Q3

REPORT INFORMATION
  Report Type: 
  Country: None (occurrence: None)
  Receive Date: 20100728
  Receipt Date: 20091230
  Transmission Date: 20110219
  Serious: No
  Sender: FDA-Public Use
  Company Number: US-ABBOTT-10P-163-0617723-00

PATIENT
  Sex: Female

DRUGS (5)
  1. SYNTHROID [Suspect]
     Indication: HYPOTHYROIDISM
     Dates: start: 20091130
  2. ISOSORBIDE MONONITRATE [Concomitant]
     Indication: CARDIOMEGALY
     Dosage: UNKNOWN
  3. PLAVIX [Concomitant]
     Indication: CORONARY ARTERIAL STENT INSERTION
     Dosage: UNKNOWN
  4. ASPIRIN [Concomitant]
     Indication: CORONARY ARTERIAL STENT INSERTION
  5. HAZAR [Concomitant]
     Indication: FLUID RETENTION
     Dosage: UNKNOWN

REACTIONS (2)
  - BLOOD PRESSURE INCREASED [None]
  - DYSPEPSIA [None]
